FAERS Safety Report 11048163 (Version 1)
Quarter: 2015Q2

REPORT INFORMATION
  Report Type: Spontaneous
  Country: FR (occurrence: FR)
  Receive Date: 20150420
  Receipt Date: 20150420
  Transmission Date: 20150821
  Serious: Yes (Hospitalization)
  Sender: FDA-Public Use
  Company Number: FR-SA-2015SA048329

PATIENT
  Age: 73 Year
  Sex: Female

DRUGS (17)
  1. LASILIX [Suspect]
     Active Substance: FUROSEMIDE
     Route: 042
     Dates: start: 20150319
  2. HYDROXOCOBALAMIN [Suspect]
     Active Substance: HYDROXOCOBALAMIN
     Route: 042
     Dates: start: 20150317, end: 20150317
  3. PROPOFOL. [Suspect]
     Active Substance: PROPOFOL
     Route: 042
     Dates: start: 20150317, end: 20150323
  4. INSULIN [Concomitant]
     Active Substance: INSULIN NOS
     Route: 058
     Dates: start: 20150317
  5. STILNOX [Concomitant]
     Active Substance: ZOLPIDEM TARTRATE
  6. MIDAZOLAM [Suspect]
     Active Substance: MIDAZOLAM\MIDAZOLAM HYDROCHLORIDE
     Route: 042
     Dates: start: 20150317, end: 20150323
  7. BYETTA [Concomitant]
     Active Substance: EXENATIDE
  8. NOVONORM [Concomitant]
     Active Substance: REPAGLINIDE
  9. EFFEXOR [Concomitant]
     Active Substance: VENLAFAXINE HYDROCHLORIDE
  10. EFFEXOR [Concomitant]
     Active Substance: VENLAFAXINE HYDROCHLORIDE
     Dates: start: 20150326
  11. NORDAZ [Concomitant]
     Active Substance: NORDAZEPAM
  12. SUFENTANIL MYLAN [Suspect]
     Active Substance: SUFENTANIL
     Route: 042
     Dates: start: 20150317, end: 20150323
  13. AMOXICILLIN\CLAVULANIC ACID [Suspect]
     Active Substance: AMOXICILLIN\CLAVULANIC ACID
     Route: 042
     Dates: start: 20150319
  14. OMEPRAZOLE. [Concomitant]
     Active Substance: OMEPRAZOLE
     Dosage: STRENGTH: 40MG
     Route: 042
     Dates: start: 20150317
  15. LOVENOX [Concomitant]
     Active Substance: ENOXAPARIN SODIUM
     Route: 058
     Dates: start: 20150317
  16. METFORMIN [Concomitant]
     Active Substance: METFORMIN HYDROCHLORIDE
  17. LEVOPHED [Concomitant]
     Active Substance: NOREPINEPHRINE BITARTRATE
     Dates: end: 20150319

REACTIONS (1)
  - Acute kidney injury [Recovering/Resolving]

NARRATIVE: CASE EVENT DATE: 20150320
